FAERS Safety Report 23215673 (Version 2)
Quarter: 2023Q4

REPORT INFORMATION
  Report Type: Report from Study
  Country: CA (occurrence: CA)
  Receive Date: 20231122
  Receipt Date: 20231222
  Transmission Date: 20240109
  Serious: Yes (Other)
  Sender: FDA-Public Use
  Company Number: CA-ABBVIE-5506300

PATIENT
  Age: 23 Year
  Sex: Male

DRUGS (1)
  1. SKYRIZI [Suspect]
     Active Substance: RISANKIZUMAB-RZAA
     Indication: Crohn^s disease
     Route: 042
     Dates: start: 20231115

REACTIONS (3)
  - Seizure [Recovering/Resolving]
  - Presyncope [Recovering/Resolving]
  - Fear of injection [Unknown]

NARRATIVE: CASE EVENT DATE: 20231115
